FAERS Safety Report 8280741-9 (Version None)
Quarter: 2012Q2

REPORT INFORMATION
  Report Type: 
  Country: None (occurrence: None)
  Receive Date: 20120412
  Receipt Date: 20120402
  Transmission Date: 20120825
  Serious: Yes (Other)
  Sender: FDA-Public Use
  Company Number: US-ABBOTT-12P-163-0922224-00

PATIENT
  Sex: Female
  Weight: 48.578 kg

DRUGS (13)
  1. ATIVAN [Concomitant]
     Indication: ANXIETY
  2. FIORCET [Concomitant]
     Indication: MIGRAINE
  3. CREON [Suspect]
     Indication: PANCREATIC INSUFFICIENCY
     Dosage: DAILY DOSE: 12 CAPSULES
     Dates: start: 20100101, end: 20120101
  4. LANTUS [Concomitant]
     Indication: DIABETES MELLITUS
  5. PRILOSEC [Concomitant]
     Indication: GASTROOESOPHAGEAL REFLUX DISEASE
  6. CELEBREX [Concomitant]
     Indication: ARTHRITIS
  7. HUMALOG [Concomitant]
     Indication: DIABETES MELLITUS
  8. LISINOPRIL [Concomitant]
     Indication: HYPERTENSION
  9. CHEWABLE MULTI VITAMIN [Concomitant]
     Indication: VITAMIN SUPPLEMENTATION
  10. PERCOCET [Concomitant]
     Indication: BACK PAIN
  11. CREON [Suspect]
     Dosage: DAILY DOSE: 12 CAPSULES
     Route: 048
     Dates: start: 20120101
  12. ZANTAC [Concomitant]
     Indication: GASTROOESOPHAGEAL REFLUX DISEASE
     Dosage: DAILY DOSE: 150MG
  13. FIORCET [Concomitant]
     Indication: HEADACHE

REACTIONS (9)
  - ABDOMINAL PAIN [None]
  - INTESTINAL STENOSIS [None]
  - INTESTINAL OBSTRUCTION [None]
  - NAUSEA [None]
  - ADHESION [None]
  - FAECES DISCOLOURED [None]
  - FAILURE TO THRIVE [None]
  - WEIGHT DECREASED [None]
  - VOMITING [None]
